FAERS Safety Report 26070312 (Version 1)
Quarter: 2025Q4

REPORT INFORMATION
  Report Type: Spontaneous
  Country: US (occurrence: None)
  Receive Date: 20251120
  Receipt Date: 20251120
  Transmission Date: 20260119
  Serious: No
  Sender: FDA-CTU
  Company Number: None

PATIENT
  Age: 70 Year
  Sex: Female
  Weight: 76.5 kg

DRUGS (8)
  1. SERTRALINE [Suspect]
     Active Substance: SERTRALINE HYDROCHLORIDE
     Indication: Anxiety
     Dosage: FREQUENCY : DAILY;?
     Route: 048
     Dates: start: 20251115, end: 20251119
  2. LEVOTHYROXINE SODIUM [Concomitant]
     Active Substance: LEVOTHYROXINE SODIUM
  3. TRELEGY ELLIPTA [Concomitant]
     Active Substance: FLUTICASONE FUROATE\UMECLIDINIUM BROMIDE\VILANTEROL TRIFENATATE
  4. FLONASE [Concomitant]
     Active Substance: FLUTICASONE PROPIONATE
  5. asterpo nasal spray [Concomitant]
  6. CALCIUM [Concomitant]
     Active Substance: CALCIUM
  7. FISH OIL [Concomitant]
     Active Substance: FISH OIL
  8. VITAMINS [Concomitant]
     Active Substance: VITAMINS

REACTIONS (2)
  - Rash erythematous [None]
  - Pruritus [None]

NARRATIVE: CASE EVENT DATE: 20251120
